FAERS Safety Report 4349610-0 (Version None)
Quarter: 2004Q1

REPORT INFORMATION
  Report Type: 
  Country: None (occurrence: None)
  Receive Date: 20040329
  Receipt Date: 20040211
  Transmission Date: 20041129
  Serious: No
  Sender: FDA-Public Use
  Company Number: USA031050488

PATIENT
  Age: 6 Year
  Sex: Male
  Weight: 32 kg

DRUGS (2)
  1. STRATTERA [Suspect]
     Dosage: 40 MG/DAY
  2. CLARITIN [Concomitant]

REACTIONS (4)
  - DRUG EFFECT DECREASED [None]
  - RETCHING [None]
  - SOMNOLENCE [None]
  - VOMITING [None]
